FAERS Safety Report 8824308 (Version 1)
Quarter: 2012Q4

REPORT INFORMATION
  Report Type: 
  Country: FR (occurrence: FR)
  Receive Date: 20121004
  Receipt Date: 20121004
  Transmission Date: 20130627
  Serious: Yes (Hospitalization, Congenital Anomaly)
  Sender: FDA-Public Use
  Company Number: FR-ASTELLAS-2012EU007232

PATIENT
  Age: 0 Year
  Sex: Male
  Weight: 2.09 kg

DRUGS (4)
  1. PROGRAF [Suspect]
     Indication: MATERNAL EXPOSURE DURING PREGNANCY
     Dosage: UNK
     Route: 064
     Dates: start: 20110411, end: 20111208
  2. IMUREL [Suspect]
     Indication: MATERNAL EXPOSURE DURING PREGNANCY
     Dosage: UNK
     Route: 064
     Dates: start: 20110411, end: 20111208
  3. CORTANCYL [Suspect]
     Indication: MATERNAL EXPOSURE DURING PREGNANCY
     Dosage: UNK
     Route: 064
     Dates: start: 20110411, end: 20111208
  4. ZITROMAX [Suspect]
     Indication: MATERNAL EXPOSURE DURING PREGNANCY
     Dosage: UNK
     Route: 064
     Dates: start: 20110411, end: 20111208

REACTIONS (3)
  - Aortic valve incompetence [Unknown]
  - Atrial septal defect [Unknown]
  - Atrial septal defect [Unknown]
